FAERS Safety Report 6713379-2 (Version None)
Quarter: 2010Q2

REPORT INFORMATION
  Report Type: 
  Country: None (occurrence: None)
  Receive Date: 20100506
  Receipt Date: 20100428
  Transmission Date: 20101027
  Serious: Yes (Other)
  Sender: FDA-Public Use
  Company Number: JP-ROCHE-699917

PATIENT
  Age: 61 Year
  Sex: Female

DRUGS (3)
  1. XELODA [Suspect]
     Indication: RECTAL CANCER
     Dosage: DRUG NAME: XELODA 300
     Route: 048
  2. AVASTIN [Suspect]
     Indication: RECTAL CANCER
     Dosage: DOSE IS UNCERTAIN
     Route: 041
     Dates: start: 20080901, end: 20081201
  3. AVASTIN [Suspect]
     Route: 041
     Dates: start: 20100304, end: 20100415

REACTIONS (2)
  - GASTRIC PERFORATION [None]
  - HERPES ZOSTER [None]
